FAERS Safety Report 6904067-8 (Version None)
Quarter: 2010Q3

REPORT INFORMATION
  Report Type: 
  Country: None (occurrence: None)
  Receive Date: 20100804
  Receipt Date: 20090305
  Transmission Date: 20110219
  Serious: No
  Sender: FDA-Public Use
  Company Number: US-PFIZER INC-2008159170

PATIENT
  Sex: Female
  Weight: 68 kg

DRUGS (4)
  1. LYRICA [Suspect]
     Indication: NEURALGIA
     Dosage: 50 MG, 1X/DAY
     Route: 048
     Dates: start: 20081217, end: 20081219
  2. EPHEDRINE [Concomitant]
     Dosage: 100 MG, 3X/DAY
  3. DIAZEPAM [Concomitant]
     Dosage: UNK
  4. CLARITIN [Concomitant]
     Dosage: UNK

REACTIONS (5)
  - HEADACHE [None]
  - OEDEMA PERIPHERAL [None]
  - PAIN IN EXTREMITY [None]
  - SINUS CONGESTION [None]
  - SWELLING FACE [None]
